FAERS Safety Report 7770409-7 (Version None)
Quarter: 2011Q3

REPORT INFORMATION
  Report Type: 
  Country: None (occurrence: None)
  Receive Date: 20110922
  Receipt Date: 20100928
  Transmission Date: 20111222
  Serious: No
  Sender: FDA-Public Use
  Company Number: US-ASTRAZENECA-2010SE43237

PATIENT
  Sex: Male

DRUGS (4)
  1. XANAX [Concomitant]
  2. AMBIEN [Concomitant]
  3. SEROQUEL [Suspect]
     Indication: ANXIETY
     Route: 048
     Dates: start: 20090101, end: 20100501
  4. SEROQUEL [Suspect]
     Route: 048
     Dates: start: 20100501

REACTIONS (4)
  - IRRITABILITY [None]
  - THERAPEUTIC RESPONSE UNEXPECTED [None]
  - SOMNOLENCE [None]
  - FEELING ABNORMAL [None]
